FAERS Safety Report 9741031 (Version 3)
Quarter: 2014Q1

REPORT INFORMATION
  Report Type: Spontaneous
  Country: US (occurrence: US)
  Receive Date: 20131209
  Receipt Date: 20140207
  Transmission Date: 20141002
  Serious: Yes (Other)
  Sender: FDA-Public Use
  Company Number: US-PFIZER INC-2013350866

PATIENT
  Age: 73 Year
  Sex: Male
  Weight: 81.63 kg

DRUGS (2)
  1. DILANTIN [Suspect]
     Indication: CONVULSION
     Dosage: UNK
  2. DILANTIN [Suspect]
     Dosage: 100 MG, 3X/DAY

REACTIONS (3)
  - Cerebrovascular accident [Unknown]
  - Anticonvulsant drug level decreased [Unknown]
  - Product quality issue [Unknown]
